FAERS Safety Report 4470583-4 (Version None)
Quarter: 2004Q4

REPORT INFORMATION
  Report Type: 
  Country: None (occurrence: None)
  Receive Date: 20041001
  Receipt Date: 20040915
  Transmission Date: 20050328
  Serious: Yes (Death)
  Sender: FDA-Public Use
  Company Number: S04-FRA-04759-01

PATIENT
  Age: 80 Year
  Sex: Female

DRUGS (4)
  1. EBIXA (MEMANTINE) [Suspect]
     Indication: DEMENTIA ALZHEIMER'S TYPE
     Dosage: 10 MG QD PO
     Route: 048
     Dates: start: 20040707
  2. PAROXETINE HCL [Concomitant]
  3. ARICEPT [Concomitant]
  4. OXEOL (BAMBUTEROL HYDROCHLORIDE) [Concomitant]

REACTIONS (9)
  - ACUTE PULMONARY OEDEMA [None]
  - AGITATION [None]
  - ANAEMIA [None]
  - EATING DISORDER [None]
  - ESCHAR [None]
  - GASTROINTESTINAL CANDIDIASIS [None]
  - MALNUTRITION [None]
  - PATHOGEN RESISTANCE [None]
  - STAPHYLOCOCCAL INFECTION [None]
